FAERS Safety Report 9171691 (Version 1)
Quarter: 2013Q1

REPORT INFORMATION
  Report Type: Spontaneous
  Country: CA (occurrence: None)
  Receive Date: 20130313
  Receipt Date: 20130313
  Transmission Date: 20140127
  Serious: No
  Sender: FDA-Public Use
  Company Number: AECAN201200407

PATIENT
  Age: 49 Year
  Sex: Male
  Weight: 94 kg

DRUGS (4)
  1. PROLASTIN-C [Suspect]
     Indication: ALPHA-1 ANTI-TRYPSIN DEFICIENCY
     Route: 042
     Dates: start: 2010, end: 20120726
  2. ADVAIR [Concomitant]
  3. SPIRIVA [Concomitant]
  4. PENICILLIN [Concomitant]

REACTIONS (8)
  - Pruritus [None]
  - Injection site swelling [None]
  - Cough [None]
  - Myalgia [None]
  - Local swelling [None]
  - Thrombosis [None]
  - Food allergy [None]
  - Hypersensitivity [None]
